FAERS Safety Report 11197095 (Version 1)
Quarter: 2015Q2

REPORT INFORMATION
  Report Type: Spontaneous
  Country: US (occurrence: US)
  Receive Date: 20150617
  Receipt Date: 20150617
  Transmission Date: 20150821
  Serious: No
  Sender: FDA-Public Use
  Company Number: US-TAKEDA-2014MPI002833

PATIENT
  Age: 60 Year
  Sex: Male
  Weight: 77.55 kg

DRUGS (3)
  1. VELCADE [Suspect]
     Active Substance: BORTEZOMIB
     Indication: PLASMA CELL MYELOMA
     Dosage: TWO SHOT PER WEEK
     Route: 058
     Dates: start: 20140715
  2. DEXAMETHASONE. [Suspect]
     Active Substance: DEXAMETHASONE
     Dosage: UNK
     Route: 065
     Dates: start: 20140701
  3. VELCADE [Suspect]
     Active Substance: BORTEZOMIB
     Dosage: UNK UNK, 1/WEEK ONE SHOT PER WEEK
     Route: 058

REACTIONS (1)
  - Neuropathy peripheral [Not Recovered/Not Resolved]
